FAERS Safety Report 7340507-0 (Version None)
Quarter: 2011Q1

REPORT INFORMATION
  Report Type: 
  Country: None (occurrence: None)
  Receive Date: 20110309
  Receipt Date: 20110222
  Transmission Date: 20110831
  Serious: Yes (Life-Threatening, Other)
  Sender: FDA-Public Use
  Company Number: PHHY2011EC15188

PATIENT
  Sex: Female

DRUGS (4)
  1. PARACETAMOL [Concomitant]
  2. ACLASTA [Suspect]
     Indication: OSTEOPOROSIS
     Dosage: UNK
     Route: 042
     Dates: start: 20101101
  3. OMEPRAZOLE [Concomitant]
  4. MULTI-VITAMINS [Concomitant]

REACTIONS (7)
  - INFLUENZA LIKE ILLNESS [None]
  - PAIN [None]
  - HEADACHE [None]
  - COLITIS [None]
  - FEELING ABNORMAL [None]
  - ABDOMINAL DISCOMFORT [None]
  - URINARY TRACT INFECTION [None]
